FAERS Safety Report 6271269-6 (Version None)
Quarter: 2009Q3

REPORT INFORMATION
  Report Type: 
  Country: None (occurrence: None)
  Receive Date: 20090716
  Receipt Date: 20090716
  Transmission Date: 20100115
  Serious: No
  Sender: FDA-Public Use
  Company Number: None

PATIENT
  Age: 41 Year
  Sex: Female
  Weight: 86.1834 kg

DRUGS (2)
  1. METHADONE HCL [Suspect]
     Indication: PAIN
     Dosage: 20MGS 2X'S PER DAY PO
     Route: 048
     Dates: start: 20010101, end: 20040101
  2. METHADONE HCL [Suspect]
     Indication: PAIN
     Dosage: 40MGS 4X'S PER DAY PO
     Route: 048
     Dates: start: 20040101, end: 20090101

REACTIONS (2)
  - TOOTH DISORDER [None]
  - TOOTH LOSS [None]
